FAERS Safety Report 9442402 (Version 1)
Quarter: 2013Q3

REPORT INFORMATION
  Report Type: Spontaneous
  Country: US (occurrence: US)
  Receive Date: 20130806
  Receipt Date: 20130806
  Transmission Date: 20140515
  Serious: No
  Sender: FDA-Public Use
  Company Number: US-GLAXOSMITHKLINE-A1019846A

PATIENT
  Age: 56 Year
  Sex: Female

DRUGS (4)
  1. ADVAIR [Suspect]
     Indication: ASTHMA
     Dosage: 2PUFF TWICE PER DAY
     Route: 055
     Dates: start: 201208, end: 20130301
  2. COPAXONE [Concomitant]
  3. NASONEX [Concomitant]
  4. XOPENEX [Concomitant]

REACTIONS (8)
  - Dysphonia [Not Recovered/Not Resolved]
  - Dyspnoea [Recovering/Resolving]
  - Throat tightness [Recovering/Resolving]
  - Dizziness [Recovering/Resolving]
  - Vertigo [Recovering/Resolving]
  - Vision blurred [Recovering/Resolving]
  - Vision blurred [Recovering/Resolving]
  - Nasopharyngitis [Recovering/Resolving]
